FAERS Safety Report 17147899 (Version 1)
Quarter: 2019Q4

REPORT INFORMATION
  Report Type: Spontaneous
  Country: FR (occurrence: FR)
  Receive Date: 20191212
  Receipt Date: 20191212
  Transmission Date: 20200122
  Serious: Yes (Hospitalization)
  Sender: FDA-Public Use
  Company Number: FR-PFM-2019-15002

PATIENT

DRUGS (3)
  1. NAVELBINE [Suspect]
     Active Substance: VINORELBINE TARTRATE
     Indication: OFF LABEL USE
  2. METHYLPREDNISOLONE MYLAN [Concomitant]
     Active Substance: METHYLPREDNISOLONE
     Indication: PREMEDICATION
     Dosage: 1 DF IN TOTAL
     Route: 042
     Dates: start: 20190816, end: 20190816
  3. NAVELBINE [Suspect]
     Active Substance: VINORELBINE TARTRATE
     Indication: OVARIAN EPITHELIAL CANCER
     Dosage: 42 MG IN TOTAL
     Route: 041
     Dates: start: 20190816, end: 20190816

REACTIONS (6)
  - Hypothermia [Recovered/Resolved]
  - Off label use [Unknown]
  - Product use in unapproved indication [Unknown]
  - Hypertension [Recovered/Resolved]
  - Chills [Recovered/Resolved]
  - Infusion related reaction [Recovered/Resolved]

NARRATIVE: CASE EVENT DATE: 20190816
